FAERS Safety Report 5231776-1 (Version None)
Quarter: 2007Q1

REPORT INFORMATION
  Report Type: 
  Country: None (occurrence: None)
  Receive Date: 20070206
  Receipt Date: 20070125
  Transmission Date: 20070707
  Serious: Yes (Hospitalization)
  Sender: FDA-Public Use
  Company Number: DE-PFIZER INC-2007008414

PATIENT
  Sex: Female
  Weight: 84 kg

DRUGS (4)
  1. ARTHROTEC FORTE [Suspect]
     Indication: ANKYLOSING SPONDYLITIS
     Route: 048
  2. ETANERCEPT [Suspect]
     Indication: ANKYLOSING SPONDYLITIS
     Route: 058
     Dates: start: 20040727, end: 20061105
  3. VERABETA [Concomitant]
     Route: 048
  4. RAMIPRIL [Concomitant]
     Route: 048

REACTIONS (1)
  - MUSCLE HAEMORRHAGE [None]
